FAERS Safety Report 9290348 (Version 1)
Quarter: 2013Q2

REPORT INFORMATION
  Report Type: Spontaneous
  Country: CN (occurrence: CN)
  Receive Date: 20130515
  Receipt Date: 20130515
  Transmission Date: 20140414
  Serious: Yes (Other)
  Sender: FDA-Public Use
  Company Number: CN-ASTELLAS-2013JP005774

PATIENT
  Age: 49 Year
  Sex: Male

DRUGS (9)
  1. PROGRAF [Suspect]
     Indication: RENAL TRANSPLANT
     Dosage: UNK
     Route: 048
     Dates: end: 20130503
  2. PROGRAF [Suspect]
     Dosage: UNK
     Route: 048
     Dates: start: 20130304, end: 20130403
  3. MYFORTIC [Concomitant]
     Indication: RENAL TRANSPLANT
     Dosage: 3 DF, BID
     Route: 048
     Dates: start: 20130301
  4. CORTICOSTEROID NOS [Concomitant]
     Indication: RENAL TRANSPLANT
     Dosage: UNK
     Route: 048
     Dates: start: 20130301
  5. TAZOCIN [Concomitant]
     Indication: LUNG INFECTION
     Dosage: UNK
     Route: 065
  6. ANTIBIOTICS [Concomitant]
     Indication: LUNG INFECTION
     Dosage: UNK
     Route: 048
  7. CICLOSPORIN A [Concomitant]
     Dosage: UNK
     Route: 065
     Dates: start: 20130503
  8. DIURETIN [Concomitant]
     Indication: URINE OUTPUT DECREASED
     Dosage: 2 DF, UNKNOWN/D
     Route: 065
     Dates: start: 20130503
  9. FUROSEMIDE [Concomitant]
     Indication: POLYURIA
     Dosage: UNK
     Route: 048
     Dates: end: 20130508

REACTIONS (7)
  - Blood creatinine increased [Not Recovered/Not Resolved]
  - Urine output decreased [Recovered/Resolved]
  - Graft thrombosis [Recovered/Resolved]
  - Lung infection [Recovered/Resolved]
  - Urine output decreased [Recovering/Resolving]
  - Insomnia [Not Recovered/Not Resolved]
  - Lethargy [Not Recovered/Not Resolved]
